FAERS Safety Report 10229112 (Version 1)
Quarter: 2014Q2

REPORT INFORMATION
  Report Type: Spontaneous
  Country: DE (occurrence: DE)
  Receive Date: 20140611
  Receipt Date: 20140611
  Transmission Date: 20141212
  Serious: Yes (Death, Life-Threatening)
  Sender: FDA-Public Use
  Company Number: GXKR2014DE002188

PATIENT
  Sex: 0

DRUGS (6)
  1. RAMIPRIL [Suspect]
     Dosage: 5 MG, UNK
     Route: 048
     Dates: end: 20140320
  2. TAVOR (LORAZEPAM) [Concomitant]
     Dosage: 3 MG, UNK
     Route: 048
     Dates: start: 20140304, end: 20140311
  3. TAVOR (LORAZEPAM) [Concomitant]
     Dosage: 4 MG, UNK
     Route: 048
     Dates: start: 20140312, end: 20140320
  4. L-THYROXINE//LEVOTHYROXINE [Concomitant]
     Dosage: 100 UG, UNK
     Route: 048
     Dates: end: 20140320
  5. METFORMIN [Concomitant]
     Dosage: 1000 MG, UNK
     Route: 048
     Dates: end: 20140320
  6. KALINOR//POTASSIUM CHLORIDE [Concomitant]
     Dosage: 1 DF, UNK
     Route: 048
     Dates: start: 20140315, end: 20140320

REACTIONS (1)
  - Myocardial infarction [Fatal]
